FAERS Safety Report 10629928 (Version 1)
Quarter: 2014Q4

REPORT INFORMATION
  Report Type: Spontaneous
  Country: US (occurrence: US)
  Receive Date: 20141205
  Receipt Date: 20141205
  Transmission Date: 20150529
  Serious: Yes (Death)
  Sender: FDA-Public Use
  Company Number: US-BRISTOL-MYERS SQUIBB COMPANY-21404447

PATIENT
  Age: 32 Year
  Sex: Male

DRUGS (1)
  1. YERVOY [Suspect]
     Active Substance: IPILIMUMAB
     Indication: METASTATIC MALIGNANT MELANOMA
     Dosage: 1ST DOSE:171MG.?2ND DOSE:188MG.?3RD DOSE:223MG
     Dates: start: 20140715

REACTIONS (1)
  - Malignant neoplasm progression [Fatal]
